FAERS Safety Report 26208982 (Version 1)
Quarter: 2025Q4

REPORT INFORMATION
  Report Type: Spontaneous
  Country: US (occurrence: None)
  Receive Date: 20251227
  Receipt Date: 20251227
  Transmission Date: 20260118
  Serious: Yes (Hospitalization)
  Sender: FDA-CTU
  Company Number: None

PATIENT
  Age: 43 Year
  Sex: Female

DRUGS (1)
  1. AVONEX [Suspect]
     Active Substance: INTERFERON BETA-1A
     Dosage: 30MCG INTRAMUSCULAR INJECTION WEEKLY
     Route: 030

REACTIONS (6)
  - Multiple sclerosis [None]
  - Fall [None]
  - Drug ineffective [None]
  - Gait disturbance [None]
  - Hemiparaesthesia [None]
  - Multiple sclerosis relapse [None]
